FAERS Safety Report 13184630 (Version 8)
Quarter: 2017Q3

REPORT INFORMATION
  Report Type: Report from Study
  Country: FR (occurrence: FR)
  Receive Date: 20170203
  Receipt Date: 20170712
  Transmission Date: 20171127
  Serious: Yes (Hospitalization, Other)
  Sender: FDA-Public Use
  Company Number: PHHY2016FR173642

PATIENT
  Age: 54 Year
  Sex: Male
  Weight: 84 kg

DRUGS (31)
  1. MYFORTIC [Suspect]
     Active Substance: MYCOPHENOLATE SODIUM
     Dosage: 1440 MG, QD
     Route: 065
     Dates: start: 20160525, end: 20160828
  2. NEORAL [Concomitant]
     Active Substance: CYCLOSPORINE
     Dosage: 150 MG, QD
     Route: 065
     Dates: start: 201405, end: 201405
  3. ADVAGRAF [Concomitant]
     Active Substance: TACROLIMUS
     Indication: IMMUNOSUPPRESSANT DRUG THERAPY
     Dosage: 5 MG, QD
     Route: 065
     Dates: start: 20131223, end: 20140610
  4. AMLOR [Concomitant]
     Active Substance: AMLODIPINE BESYLATE
     Indication: HYPERTENSION
     Dosage: UNK
     Route: 065
     Dates: start: 20140120
  5. CATAPRES [Concomitant]
     Active Substance: CLONIDINE HYDROCHLORIDE
     Indication: HYPERTENSION
     Dosage: UNK
     Route: 065
     Dates: start: 201701, end: 20170221
  6. NEORAL [Concomitant]
     Active Substance: CYCLOSPORINE
     Dosage: 100 MG, QD
     Route: 065
     Dates: start: 20140529, end: 20140601
  7. CELLCEPT [Concomitant]
     Active Substance: MYCOPHENOLATE MOFETIL\MYCOPHENOLATE MOFETIL HYDROCHLORIDE
     Dosage: 2500 MG, QD
     Route: 065
     Dates: start: 20160927, end: 201702
  8. CELLCEPT [Concomitant]
     Active Substance: MYCOPHENOLATE MOFETIL\MYCOPHENOLATE MOFETIL HYDROCHLORIDE
     Dosage: 2000 MG, QD
     Route: 065
     Dates: start: 20170313
  9. CERTICAN [Suspect]
     Active Substance: EVEROLIMUS
     Indication: PROPHYLAXIS AGAINST TRANSPLANT REJECTION
     Dosage: 1 MG, QD
     Route: 048
     Dates: start: 20141016, end: 20150211
  10. MYFORTIC [Suspect]
     Active Substance: MYCOPHENOLATE SODIUM
     Indication: IMMUNOSUPPRESSANT DRUG THERAPY
     Dosage: 720 MG, QD
     Route: 065
     Dates: start: 20140611, end: 20140730
  11. CELLCEPT [Concomitant]
     Active Substance: MYCOPHENOLATE MOFETIL\MYCOPHENOLATE MOFETIL HYDROCHLORIDE
     Indication: IMMUNOSUPPRESSANT DRUG THERAPY
     Dosage: 2000 MG, QD
     Route: 065
     Dates: start: 20160829, end: 20160926
  12. CELLCEPT [Concomitant]
     Active Substance: MYCOPHENOLATE MOFETIL\MYCOPHENOLATE MOFETIL HYDROCHLORIDE
     Dosage: 1000 MG, QD
     Route: 065
     Dates: start: 20170223, end: 20170312
  13. BACLOFENE [Concomitant]
     Active Substance: BACLOFEN
     Indication: PROPHYLAXIS
     Dosage: UNK, BID
     Route: 065
     Dates: start: 20140521
  14. EUPRESSYL [Concomitant]
     Active Substance: URAPIDIL
     Indication: HYPERTENSION
     Dosage: 180 MG, QD
     Route: 065
     Dates: start: 20140401, end: 20170221
  15. CERTICAN [Suspect]
     Active Substance: EVEROLIMUS
     Indication: LIVER TRANSPLANT
     Dosage: 2 MG, QD
     Route: 048
     Dates: start: 20140611, end: 20141015
  16. CERTICAN [Suspect]
     Active Substance: EVEROLIMUS
     Dosage: 0.5 MG, QD
     Route: 065
     Dates: start: 20160525, end: 20160828
  17. CORTANCYL [Concomitant]
     Active Substance: PREDNISONE
     Dosage: 5 MG, QD
     Route: 065
     Dates: start: 20140207, end: 20140730
  18. HYDROCORTISONE. [Concomitant]
     Active Substance: HYDROCORTISONE
     Indication: PRODUCT USED FOR UNKNOWN INDICATION
     Dosage: 20 MG, QD
     Route: 065
     Dates: start: 20140611, end: 20140730
  19. MYFORTIC [Suspect]
     Active Substance: MYCOPHENOLATE SODIUM
     Indication: LIVER TRANSPLANT
     Dosage: 1440 MG, QD
     Route: 065
     Dates: start: 20131022, end: 20140610
  20. MYFORTIC [Suspect]
     Active Substance: MYCOPHENOLATE SODIUM
     Dosage: 720 MG, QD
     Route: 065
     Dates: start: 20141016, end: 20160524
  21. NEORAL [Concomitant]
     Active Substance: CYCLOSPORINE
     Dosage: 50 MG, QD
     Route: 065
     Dates: start: 20140611, end: 20140730
  22. ADVAGRAF [Concomitant]
     Active Substance: TACROLIMUS
     Dosage: 4 MG, QD
     Route: 065
     Dates: start: 20140207, end: 20140320
  23. CELLCEPT [Concomitant]
     Active Substance: MYCOPHENOLATE MOFETIL\MYCOPHENOLATE MOFETIL HYDROCHLORIDE
     Dosage: 1750 MG, QD
     Route: 065
     Dates: start: 201702, end: 20170222
  24. CERTICAN [Suspect]
     Active Substance: EVEROLIMUS
     Indication: IMMUNOSUPPRESSANT DRUG THERAPY
     Dosage: 2 MG, QD
     Route: 065
     Dates: start: 20150212, end: 20160524
  25. MYFORTIC [Suspect]
     Active Substance: MYCOPHENOLATE SODIUM
     Dosage: 1440 MG, QD
     Route: 065
     Dates: start: 20140731, end: 20141015
  26. PROGRAF [Concomitant]
     Active Substance: TACROLIMUS\TACROLIMUS ANHYDROUS
     Indication: IMMUNOSUPPRESSANT DRUG THERAPY
     Dosage: 4 MG, QD
     Route: 065
     Dates: start: 20131127, end: 20131222
  27. NEORAL [Concomitant]
     Active Substance: CYCLOSPORINE
     Indication: IMMUNOSUPPRESSANT DRUG THERAPY
     Dosage: 150 MG, QD
     Route: 065
     Dates: start: 20140321, end: 20140522
  28. NEORAL [Concomitant]
     Active Substance: CYCLOSPORINE
     Dosage: 125 MG, QD
     Route: 065
     Dates: start: 20140523
  29. CORTANCYL [Concomitant]
     Active Substance: PREDNISONE
     Indication: IMMUNOSUPPRESSANT DRUG THERAPY
     Dosage: 2.5 MG, QD
     Route: 065
     Dates: start: 20130813, end: 20130923
  30. ZMAX [Concomitant]
     Active Substance: AZITHROMYCIN DIHYDRATE
     Indication: CAMPYLOBACTER GASTROENTERITIS
     Dosage: UNK
     Route: 065
     Dates: start: 20130813, end: 201309
  31. SELINCRO [Concomitant]
     Active Substance: NALMEFENE HYDROCHLORIDE DIHYDRATE
     Indication: ALCOHOLISM
     Dosage: UNK
     Route: 065

REACTIONS (47)
  - Anxiety [Not Recovered/Not Resolved]
  - Dizziness [Recovered/Resolved]
  - Asthenia [Recovered/Resolved]
  - Septic shock [Recovered/Resolved]
  - Gamma-glutamyltransferase increased [Recovering/Resolving]
  - Blood creatine phosphokinase increased [Unknown]
  - Blood glucose decreased [Unknown]
  - Blood bilirubin increased [Unknown]
  - Bilirubin conjugated increased [Unknown]
  - pH body fluid decreased [Unknown]
  - PCO2 decreased [Unknown]
  - Acute kidney injury [Recovered/Resolved]
  - Lung disorder [Unknown]
  - Jaundice [Recovered/Resolved]
  - Blood creatinine increased [Recovering/Resolving]
  - Osteoporosis [Not Recovered/Not Resolved]
  - Hypernatriuria [Recovered/Resolved]
  - Alanine aminotransferase increased [Recovered/Resolved]
  - Haemoglobin decreased [Unknown]
  - Blood alkaline phosphatase increased [Unknown]
  - Proteinuria [Unknown]
  - Urinary tract infection [Recovered/Resolved]
  - PO2 decreased [Unknown]
  - Lung disorder [Recovered/Resolved]
  - Lung disorder [Recovered/Resolved]
  - Delirium tremens [Recovered/Resolved]
  - Oesophagitis [Recovered/Resolved]
  - Blood lactic acid increased [Unknown]
  - Carbon dioxide decreased [Unknown]
  - Hypothermia [Recovered/Resolved]
  - Fall [Recovered/Resolved]
  - Confusional state [Recovered/Resolved]
  - Femur fracture [Recovered/Resolved]
  - Cholestasis [Recovered/Resolved]
  - Anaemia [Recovered/Resolved]
  - Aspartate aminotransferase increased [Recovered/Resolved]
  - Blood sodium increased [Unknown]
  - Pulmonary mass [Recovered/Resolved]
  - Colitis [Recovered/Resolved]
  - Eyelid oedema [Recovered/Resolved]
  - Pleural effusion [Recovered/Resolved]
  - Fibrosis [Not Recovered/Not Resolved]
  - Melaena [Recovered/Resolved]
  - Blood urea increased [Unknown]
  - Hip fracture [Recovered/Resolved]
  - Hyperkalaemia [Recovered/Resolved]
  - Hypokalaemia [Recovered/Resolved]

NARRATIVE: CASE EVENT DATE: 201402
